FAERS Safety Report 18413156 (Version 2)
Quarter: 2020Q4

REPORT INFORMATION
  Report Type: Spontaneous
  Country: FR (occurrence: FR)
  Receive Date: 20201022
  Receipt Date: 20201201
  Transmission Date: 20210114
  Serious: Yes (Death, Other)
  Sender: FDA-Public Use
  Company Number: FR-DRREDDYS-USA/FRA/20/0128255

PATIENT
  Age: 84 Year
  Sex: Female

DRUGS (4)
  1. AZACITIDINE. [Suspect]
     Active Substance: AZACITIDINE
     Indication: BLASTIC PLASMACYTOID DENDRITIC CELL NEOPLASIA
     Route: 065
  2. LENALIDOMIDE [Suspect]
     Active Substance: LENALIDOMIDE
     Indication: BLASTIC PLASMACYTOID DENDRITIC CELL NEOPLASIA
     Dosage: FROM DAYS 1 TO 14, IN 21-DAY CYCLES
     Route: 048
  3. BORTEZOMIB. [Suspect]
     Active Substance: BORTEZOMIB
     Indication: BLASTIC PLASMACYTOID DENDRITIC CELL NEOPLASIA
     Dosage: ON DAYS 1, 4, 8, AND 11, IN 21-DAY CYCLES
     Route: 042
  4. DEXAMETHASONE. [Suspect]
     Active Substance: DEXAMETHASONE
     Indication: BLASTIC PLASMACYTOID DENDRITIC CELL NEOPLASIA
     Dosage: ON DAYS 1, 4, 8, AND 11, IN 21-DAY CYCLES

REACTIONS (5)
  - Disease recurrence [Fatal]
  - Drug ineffective [Unknown]
  - Gene mutation [Fatal]
  - Drug resistance [Fatal]
  - Blastic plasmacytoid dendritic cell neoplasia [Fatal]
